FAERS Safety Report 4348009-0 (Version None)
Quarter: 2004Q2

REPORT INFORMATION
  Report Type: 
  Country: None (occurrence: None)
  Receive Date: 20040422
  Receipt Date: 20040415
  Transmission Date: 20050107
  Serious: Yes (Death)
  Sender: FDA-Public Use
  Company Number: 200411174GDS

PATIENT
  Age: 42 Year
  Sex: Female

DRUGS (5)
  1. NIMOTOP [Suspect]
     Indication: BRAIN CONTUSION
     Dosage: 10 MG, BID, INTRAVENOUS
     Route: 042
     Dates: start: 20040329, end: 20040331
  2. MANNITOL [Concomitant]
  3. FRUCTOSE [Concomitant]
  4. APROTININ [Concomitant]
  5. ANTIBIOTICS [Concomitant]

REACTIONS (2)
  - BRAIN HERNIATION [None]
  - BRAIN OEDEMA [None]
